FAERS Safety Report 4657434-X (Version None)
Quarter: 2005Q2

REPORT INFORMATION
  Report Type: 
  Country: None (occurrence: None)
  Receive Date: 20050509
  Receipt Date: 20050509
  Transmission Date: 20051028
  Serious: Yes (Hospitalization, Other)
  Sender: FDA-Public Use
  Company Number: None

PATIENT
  Sex: Female

DRUGS (17)
  1. FEEN-A-MINT TABLETS [Suspect]
     Indication: CONSTIPATION
     Dosage: 3 TIMES QD ORAL
     Route: 048
     Dates: start: 19850101, end: 19860101
  2. MINERAL OIL OIL [Suspect]
     Indication: CONSTIPATION
     Dosage: 1QD/4XS MO
     Dates: start: 19861201
  3. FLEET ENEMA ENEMA [Suspect]
     Indication: CONSTIPATION
     Dosage: TWICE WEEKLY
     Dates: start: 19850101, end: 19860101
  4. EPSON SALT [Suspect]
     Indication: CONSTIPATION
     Dosage: 1 BOX QD
     Dates: start: 19830201, end: 19830301
  5. EX-LAX [Suspect]
     Indication: CONSTIPATION
     Dosage: 2 TWICE QD
     Dates: start: 19700101, end: 19790101
  6. DULCOLAX [Suspect]
     Indication: CONSTIPATION
     Dosage: ONCE DAILY
     Dates: start: 19800101, end: 19810101
  7. CASTOR OIL [Suspect]
     Indication: CONSTIPATION
     Dosage: 1 BOTTLE BID
     Dates: start: 19830401, end: 19840201
  8. MILK OF MAGNESIA TAB [Suspect]
     Indication: CONSTIPATION
     Dosage: ONCE DAILY
     Dates: start: 19860801, end: 19861101
  9. PREDNISONE [Concomitant]
  10. AZULFIDINE [Concomitant]
  11. PHENERGAN [Concomitant]
  12. LORCET-HD [Concomitant]
  13. OXYCONTIN [Concomitant]
  14. AMBIEN [Concomitant]
  15. PROZAC [Concomitant]
  16. DARVOCET-N 100 [Concomitant]
  17. PENTASA [Concomitant]

REACTIONS (12)
  - ABDOMINAL PAIN [None]
  - CONDITION AGGRAVATED [None]
  - CONSTIPATION [None]
  - CROHN'S DISEASE [None]
  - DEPRESSION [None]
  - DIARRHOEA [None]
  - INFLAMMATION [None]
  - INTESTINAL OBSTRUCTION [None]
  - NAUSEA [None]
  - PROCEDURAL SITE REACTION [None]
  - TREATMENT NONCOMPLIANCE [None]
  - VOMITING [None]
